FAERS Safety Report 22205615 (Version 1)
Quarter: 2023Q2

REPORT INFORMATION
  Report Type: Spontaneous
  Country: US (occurrence: None)
  Receive Date: 20230413
  Receipt Date: 20230413
  Transmission Date: 20230722
  Serious: No
  Sender: FDA-Public Use
  Company Number: 2023A071173

PATIENT
  Sex: Female
  Weight: 50.3 kg

DRUGS (1)
  1. PULMICORT FLEXHALER [Suspect]
     Active Substance: BUDESONIDE
     Indication: Throat cancer
     Route: 055
     Dates: start: 20230323

REACTIONS (2)
  - Dyspnoea [Unknown]
  - Off label use [Unknown]
